FAERS Safety Report 4840429-0 (Version None)
Quarter: 2005Q4

REPORT INFORMATION
  Report Type: 
  Country: None (occurrence: None)
  Receive Date: 20051101
  Receipt Date: 20050901
  Transmission Date: 20060501
  Serious: No
  Sender: FDA-Public Use
  Company Number: MK200509-0052-1

PATIENT
  Age: 52 Year
  Sex: Female

DRUGS (8)
  1. NEUTROSPEC [Suspect]
     Indication: BACTERAEMIA
     Dosage: 18.5 MCI, ONE TIME, IV
     Route: 042
     Dates: start: 20050901, end: 20050901
  2. POTASSIUM CHLORIDE [Concomitant]
  3. VANCOMYCIN [Concomitant]
  4. MORPHINE [Concomitant]
  5. PROMETHAZINE [Concomitant]
  6. TYLENOL W/ CODEINE [Concomitant]
  7. PROTONIX [Concomitant]
  8. QUINAPRIL [Concomitant]

REACTIONS (6)
  - BACK PAIN [None]
  - CHEST PAIN [None]
  - FLUSHING [None]
  - HYPERTENSION [None]
  - RESPIRATORY RATE INCREASED [None]
  - TACHYCARDIA [None]
